FAERS Safety Report 9796760 (Version 1)
Quarter: 2014Q1

REPORT INFORMATION
  Report Type: Spontaneous
  Country: US (occurrence: US)
  Receive Date: 20140103
  Receipt Date: 20140103
  Transmission Date: 20141002
  Serious: Yes (Hospitalization)
  Sender: FDA-Public Use
  Company Number: US-BAXTER-2013BAX053067

PATIENT
  Sex: Male

DRUGS (1)
  1. HEPARIN SODIUM IN 5% DEXTROSE INJECTION [Suspect]
     Indication: FIBRIN ABNORMAL

REACTIONS (1)
  - Hyperkalaemia [Unknown]
